FAERS Safety Report 20344342 (Version 3)
Quarter: 2024Q3

REPORT INFORMATION
  Report Type: Spontaneous
  Country: CN (occurrence: CN)
  Receive Date: 20220118
  Receipt Date: 20240829
  Transmission Date: 20241016
  Serious: Yes (Other)
  Sender: GLAXOSMITHKLINE
  Company Number: CN-GLAXOSMITHKLINE-CN2021APC159507

PATIENT

DRUGS (2)
  1. LAMICTAL [Suspect]
     Active Substance: LAMOTRIGINE
     Indication: Epilepsy
     Dosage: 50 MG, 1D, 2 AND HALF TABLET DAILY
     Route: 048
     Dates: start: 20200825, end: 202104
  2. LAMICTAL [Suspect]
     Active Substance: LAMOTRIGINE
     Dosage: 50 MG, BID, 1 TABLET
     Route: 048
     Dates: start: 202104

REACTIONS (10)
  - Epilepsy [Recovered/Resolved]
  - Syncope [Unknown]
  - Rash erythematous [Unknown]
  - Drug level decreased [Unknown]
  - Fall [Unknown]
  - Urine abnormality [Unknown]
  - Wrong technique in product usage process [Recovered/Resolved]
  - Drug ineffective [Unknown]
  - Off label use [Recovered/Resolved]
  - Product complaint [Unknown]

NARRATIVE: CASE EVENT DATE: 20200825
